FAERS Safety Report 18495701 (Version 3)
Quarter: 2022Q3

REPORT INFORMATION
  Report Type: Spontaneous
  Country: US (occurrence: US)
  Receive Date: 20201112
  Receipt Date: 20220727
  Transmission Date: 20221026
  Serious: Yes (Other)
  Sender: FDA-Public Use
  Company Number: US-PFIZER INC-2020372666

PATIENT
  Age: 82 Year
  Sex: Female
  Weight: 78.005 kg

DRUGS (1)
  1. XELJANZ XR [Suspect]
     Active Substance: TOFACITINIB CITRATE
     Indication: Rheumatoid arthritis
     Dosage: 20 MG, 1X/DAY

REACTIONS (2)
  - Atrial fibrillation [Unknown]
  - Hypertension [Unknown]
